FAERS Safety Report 6265092-6 (Version None)
Quarter: 2009Q3

REPORT INFORMATION
  Report Type: 
  Country: None (occurrence: None)
  Receive Date: 20090708
  Receipt Date: 20090626
  Transmission Date: 20100115
  Serious: Yes (Other)
  Sender: FDA-Public Use
  Company Number: B0581994A

PATIENT
  Age: 41 Year
  Sex: Female

DRUGS (3)
  1. WELLBUTRIN XL [Suspect]
     Indication: DRUG USE FOR UNKNOWN INDICATION
     Dosage: ORAL
     Route: 048
     Dates: start: 20090101, end: 20090601
  2. LAMOTRIGINE [Concomitant]
  3. QUETIAPINE FUMARATE [Concomitant]

REACTIONS (2)
  - ALOPECIA [None]
  - PARESIS [None]
